FAERS Safety Report 6993639-0 (Version None)
Quarter: 2010Q3

REPORT INFORMATION
  Report Type: 
  Country: None (occurrence: None)
  Receive Date: 20100917
  Receipt Date: 20100113
  Transmission Date: 20110219
  Serious: Yes (Hospitalization)
  Sender: FDA-Public Use
  Company Number: US-ASTRAZENECA-2007UW09011

PATIENT
  Age: 11947 Day
  Sex: Male

DRUGS (6)
  1. SEROQUEL [Suspect]
     Dosage: 100 TO 400MG
     Route: 048
     Dates: start: 19990202
  2. PROLAXIN [Concomitant]
     Dosage: 10 TO 15MG
     Dates: start: 19990202
  3. PROLAXIN [Concomitant]
     Dates: start: 19990320
  4. BENADRYL [Concomitant]
     Dosage: 50MG TWO AT NIGHT
     Route: 048
     Dates: start: 19990202
  5. ZYPREXA [Concomitant]
     Dates: start: 19990302
  6. DEPAKOTE [Concomitant]
     Dosage: 500MG 2 IN THE MORNING AND 2 AT NIGHT
     Dates: start: 19990330

REACTIONS (1)
  - DIABETES MELLITUS [None]
